FAERS Safety Report 22523689 (Version 6)
Quarter: 2024Q2

REPORT INFORMATION
  Report Type: Report from Study
  Country: US (occurrence: US)
  Receive Date: 20230606
  Receipt Date: 20240508
  Transmission Date: 20240716
  Serious: No
  Sender: FDA-Public Use
  Company Number: US-002147023-NVSC2023US125755

PATIENT
  Sex: Female

DRUGS (1)
  1. KESIMPTA [Suspect]
     Active Substance: OFATUMUMAB
     Indication: Product used for unknown indication
     Dosage: UNK
     Route: 065
     Dates: start: 20230523

REACTIONS (7)
  - Fatigue [Unknown]
  - Pruritus [Unknown]
  - Rash [Unknown]
  - Nasopharyngitis [Unknown]
  - Injection site erythema [Unknown]
  - Injection site pruritus [Unknown]
  - Inappropriate schedule of product administration [Unknown]
